FAERS Safety Report 4402308-2 (Version None)
Quarter: 2004Q3

REPORT INFORMATION
  Report Type: 
  Country: None (occurrence: None)
  Receive Date: 20040720
  Receipt Date: 20040716
  Transmission Date: 20050211
  Serious: Yes (Hospitalization)
  Sender: FDA-Public Use
  Company Number: FR-GLAXOSMITHKLINE-B0339189A

PATIENT
  Age: 56 Year
  Sex: Male

DRUGS (6)
  1. ZYBAN [Suspect]
     Dosage: 150MG SEE DOSAGE TEXT
     Route: 048
     Dates: start: 20040622, end: 20040702
  2. NICOPATCH [Concomitant]
     Dosage: 14MG PER DAY
     Route: 062
     Dates: start: 20040515
  3. ASPIRIN [Concomitant]
     Dosage: 160MG PER DAY
     Route: 048
     Dates: start: 20020615, end: 20040704
  4. DILTIAZEM HYDROCHLORIDE [Concomitant]
     Dosage: 200MG PER DAY
     Route: 048
     Dates: start: 20020615
  5. SOLUPRED [Concomitant]
     Route: 065
  6. VALIUM [Concomitant]
     Route: 065

REACTIONS (2)
  - GRAND MAL CONVULSION [None]
  - METASTASES TO CENTRAL NERVOUS SYSTEM [None]
